FAERS Safety Report 22736551 (Version 4)
Quarter: 2023Q4

REPORT INFORMATION
  Report Type: Report from Study
  Country: US (occurrence: US)
  Receive Date: 20230721
  Receipt Date: 20231106
  Transmission Date: 20240110
  Serious: Yes (Other)
  Sender: FDA-Public Use
  Company Number: US-BAYER-2023A090220

PATIENT
  Age: 63 Year
  Sex: Female
  Weight: 77.098 kg

DRUGS (8)
  1. ADEMPAS [Suspect]
     Active Substance: RIOCIGUAT
     Indication: Pulmonary arterial hypertension
     Dosage: UNK
     Dates: start: 20230526
  2. ADEMPAS [Suspect]
     Active Substance: RIOCIGUAT
     Indication: Pulmonary arterial hypertension
     Dosage: 1.5 MG, TID
     Route: 048
  3. ADEMPAS [Suspect]
     Active Substance: RIOCIGUAT
     Indication: Pulmonary arterial hypertension
     Dosage: 1 MG, TID
     Route: 048
  4. UPTRAVI [Suspect]
     Active Substance: SELEXIPAG
     Dosage: UNK
  5. UPTRAVI [Suspect]
     Active Substance: SELEXIPAG
     Dosage: 1200 MG, BID
  6. UPTRAVI [Suspect]
     Active Substance: SELEXIPAG
     Dosage: 800 MG, BID
  7. SILDENAFIL CITRATE [Suspect]
     Active Substance: SILDENAFIL CITRATE
  8. ELIQUIS [Concomitant]
     Active Substance: APIXABAN

REACTIONS (26)
  - Heart rate increased [None]
  - Blood pressure decreased [None]
  - Blood pressure systolic decreased [None]
  - Fatigue [Not Recovered/Not Resolved]
  - Asthenia [None]
  - Dizziness [None]
  - Headache [Not Recovered/Not Resolved]
  - Myalgia [None]
  - Hypotension [Not Recovered/Not Resolved]
  - Nausea [None]
  - Pain [Not Recovered/Not Resolved]
  - Burning sensation [None]
  - Insomnia [None]
  - Alopecia [None]
  - Dry mouth [None]
  - Pain in extremity [None]
  - Fatigue [None]
  - Dizziness [None]
  - Limb discomfort [None]
  - Limb discomfort [None]
  - Post-traumatic pain [None]
  - Road traffic accident [None]
  - Nerve injury [None]
  - Skin warm [None]
  - Hyperhidrosis [None]
  - Neck pain [None]

NARRATIVE: CASE EVENT DATE: 20230101
